FAERS Safety Report 4320812-2 (Version None)
Quarter: 2004Q1

REPORT INFORMATION
  Report Type: 
  Country: None (occurrence: None)
  Receive Date: 20040322
  Receipt Date: 20030407
  Transmission Date: 20041129
  Serious: Yes (Hospitalization, Disabling, Other)
  Sender: FDA-Public Use
  Company Number: WAES 0304USA00753

PATIENT
  Age: 51 Year
  Sex: Male
  Weight: 118 kg

DRUGS (13)
  1. ATENOLOL [Concomitant]
  2. ZYRTEC [Concomitant]
     Dates: start: 19950101
  3. CELEXA [Concomitant]
     Dates: start: 19990101
  4. FLONASE [Concomitant]
  5. HYDROCODONE BITARTRATE [Concomitant]
     Indication: BACK PAIN
     Dates: end: 20000822
  6. LEVSIN PB [Concomitant]
     Dates: end: 20000822
  7. INDOCIN [Concomitant]
     Route: 048
     Dates: start: 19820101
  8. NAPROXEN [Concomitant]
     Dates: start: 19820101
  9. PRILOSEC [Concomitant]
  10. OXYCONTIN [Concomitant]
     Dates: start: 20000101, end: 20020101
  11. ACIPHEX [Concomitant]
     Dates: start: 19990101
  12. VIOXX [Suspect]
     Indication: OSTEOARTHRITIS
     Route: 048
     Dates: start: 20000201, end: 20000822
  13. VIOXX [Suspect]
     Indication: BACK PAIN
     Route: 048
     Dates: start: 20000201, end: 20000822

REACTIONS (26)
  - ACUTE MYOCARDIAL INFARCTION [None]
  - ANGINA PECTORIS [None]
  - AORTIC VALVE INCOMPETENCE [None]
  - ARTHRALGIA [None]
  - ASTHENIA [None]
  - CARDIOMEGALY [None]
  - CORONARY ARTERY ATHEROSCLEROSIS [None]
  - CORONARY ARTERY STENOSIS [None]
  - DILATATION VENTRICULAR [None]
  - DYSLIPIDAEMIA [None]
  - ELECTROCARDIOGRAM ST SEGMENT ELEVATION [None]
  - FALL [None]
  - LOOSE BODY IN JOINT [None]
  - MITRAL VALVE INCOMPETENCE [None]
  - MUSCULAR WEAKNESS [None]
  - MYALGIA [None]
  - PERIPHERAL COLDNESS [None]
  - ROAD TRAFFIC ACCIDENT [None]
  - ROTATOR CUFF SYNDROME [None]
  - SCAPULA FRACTURE [None]
  - SINUS BRADYCARDIA [None]
  - SKIN LACERATION [None]
  - SPINAL OSTEOARTHRITIS [None]
  - SUPRAVENTRICULAR EXTRASYSTOLES [None]
  - TENDONITIS [None]
  - VENTRICULAR DYSFUNCTION [None]
